FAERS Safety Report 24373053 (Version 4)
Quarter: 2025Q1

REPORT INFORMATION
  Report Type: Report from Study
  Country: US (occurrence: US)
  Receive Date: 20240927
  Receipt Date: 20250107
  Transmission Date: 20250409
  Serious: No
  Sender: SUNOVION
  Company Number: US-SUMITOMO PHARMA SWITZERLAND GMBH-2024SPA002545

PATIENT

DRUGS (2)
  1. ORGOVYX [Suspect]
     Active Substance: RELUGOLIX
     Indication: Prostate cancer
     Route: 048
     Dates: start: 20240826, end: 20240826
  2. ORGOVYX [Suspect]
     Active Substance: RELUGOLIX
     Dosage: 120 MG, QD
     Route: 048
     Dates: start: 20240827

REACTIONS (6)
  - Hypersomnia [Unknown]
  - Pollakiuria [Unknown]
  - Male reproductive tract disorder [Unknown]
  - Amnesia [Unknown]
  - Constipation [Not Recovered/Not Resolved]
  - Gait disturbance [Unknown]
